FAERS Safety Report 6817126-5 (Version None)
Quarter: 2010Q3

REPORT INFORMATION
  Report Type: 
  Country: None (occurrence: None)
  Receive Date: 20100706
  Receipt Date: 20100625
  Transmission Date: 20110219
  Serious: Yes (Other)
  Sender: FDA-Public Use
  Company Number: PHHY2009JP52590

PATIENT
  Sex: Female
  Weight: 61 kg

DRUGS (12)
  1. CERTICAN [Suspect]
     Indication: HEART TRANSPLANT
     Dosage: 1.5 MG/ DAY
     Route: 048
     Dates: start: 20080722, end: 20080727
  2. CERTICAN [Interacting]
     Dosage: 2.5 MG/ DAY
     Route: 048
     Dates: start: 20080101, end: 20080814
  3. CERTICAN [Interacting]
     Dosage: 5.25 MG/ DAY
     Route: 048
     Dates: start: 20080815, end: 20081030
  4. CERTICAN [Interacting]
     Dosage: 5.5 MG/ DAY
     Route: 048
     Dates: start: 20081031
  5. TEGRETOL [Interacting]
     Indication: EPILEPSY
     Route: 048
  6. PROGRAF [Interacting]
     Indication: HEART TRANSPLANT
     Dosage: 5.2 MG/DAY
  7. PROGRAF [Interacting]
     Dosage: 5.0 MG/DAY
     Route: 048
     Dates: start: 20080922
  8. CELLCEPT [Concomitant]
     Indication: HEART TRANSPLANT
     Dosage: UNK
     Route: 048
     Dates: start: 20080722
  9. PREDNISOLONE [Concomitant]
     Indication: HEART TRANSPLANT
  10. VALPROATE SODIUM [Concomitant]
     Indication: EPILEPSY
  11. PRAVASTAN [Concomitant]
     Indication: PROPHYLAXIS
     Dosage: 20 MG
     Route: 048
     Dates: start: 20050105
  12. EMPECID [Concomitant]
     Indication: PROPHYLAXIS
     Dosage: UNK
     Route: 061
     Dates: start: 20080821, end: 20080910

REACTIONS (5)
  - CORONARY ARTERY DISEASE [None]
  - DRUG INTERACTION [None]
  - DRUG LEVEL DECREASED [None]
  - EPSTEIN-BARR VIRUS ANTIGEN POSITIVE [None]
  - IMMUNOSUPPRESSANT DRUG LEVEL INCREASED [None]
